FAERS Safety Report 22237046 (Version 1)
Quarter: 2023Q2

REPORT INFORMATION
  Report Type: Spontaneous
  Country: US (occurrence: None)
  Receive Date: 20230421
  Receipt Date: 20230421
  Transmission Date: 20230722
  Serious: No
  Sender: FDA-Public Use
  Company Number: US-ROCHE-3253059

PATIENT
  Sex: Male

DRUGS (3)
  1. ESBRIET [Suspect]
     Active Substance: PIRFENIDONE
     Indication: Product used for unknown indication
     Route: 048
  2. TREPROSTINIL [Suspect]
     Active Substance: TREPROSTINIL
     Indication: Pulmonary arterial hypertension
     Route: 055
     Dates: start: 20221128
  3. TYVASO [Suspect]
     Active Substance: TREPROSTINIL
     Indication: Pulmonary arterial hypertension
     Route: 055

REACTIONS (7)
  - Arthralgia [Unknown]
  - Oxygen saturation decreased [Unknown]
  - Malaise [Recovering/Resolving]
  - Dyspnoea [Recovered/Resolved]
  - Cough [Recovered/Resolved]
  - Suffocation feeling [Unknown]
  - Rash [Unknown]
